FAERS Safety Report 25884904 (Version 1)
Quarter: 2025Q4

REPORT INFORMATION
  Report Type: Spontaneous
  Country: US (occurrence: None)
  Receive Date: 20251003
  Receipt Date: 20251003
  Transmission Date: 20260117
  Serious: Yes (Hospitalization)
  Sender: FDA-CTU
  Company Number: None

PATIENT
  Sex: Male

DRUGS (1)
  1. VYNDAMAX [Suspect]
     Active Substance: TAFAMIDIS
     Dosage: OTHER QUANTITY : TAKE 1 CAPSULE;?FREQUENCY : DAILY;?
     Route: 048
     Dates: start: 20240910

REACTIONS (3)
  - Bladder disorder [None]
  - Dyspnoea [None]
  - Therapy interrupted [None]
